FAERS Safety Report 23534232 (Version 3)
Quarter: 2024Q1

REPORT INFORMATION
  Report Type: Report from Study
  Country: CA (occurrence: CA)
  Receive Date: 20240216
  Receipt Date: 20240318
  Transmission Date: 20240409
  Serious: Yes (Other)
  Sender: FDA-Public Use
  Company Number: CA-ABBVIE-5641924

PATIENT
  Age: 54 Year
  Sex: Male
  Weight: 84 kg

DRUGS (6)
  1. UPADACITINIB [Suspect]
     Active Substance: UPADACITINIB
     Indication: Dermatitis atopic
     Route: 048
     Dates: start: 20220126, end: 20220217
  2. DESONIDE [Concomitant]
     Active Substance: DESONIDE
     Indication: Dermatitis atopic
     Dosage: TIME INTERVAL: AS NECESSARY: DOSE-1 APPLICATION
     Route: 061
     Dates: start: 20211105
  3. CLOBETASOL [Concomitant]
     Active Substance: CLOBETASOL
     Indication: Dermatitis atopic
     Dosage: TIME INTERVAL: AS NECESSARY: DOSE- 1 APPLICATION
     Route: 061
     Dates: start: 202110
  4. BRIMONIDINE [Concomitant]
     Active Substance: BRIMONIDINE TARTRATE
     Indication: Cataract
     Route: 047
     Dates: start: 20220201, end: 20220325
  5. BRINZOLAMIDE\TIMOLOL MALEATE [Concomitant]
     Active Substance: BRINZOLAMIDE\TIMOLOL MALEATE
     Indication: Cataract
     Route: 047
     Dates: start: 20220201, end: 20220325
  6. KETOROLAC [Concomitant]
     Active Substance: KETOROLAC TROMETHAMINE
     Indication: Visual impairment
     Route: 047
     Dates: start: 20220201, end: 20220325

REACTIONS (2)
  - Cataract [Recovered/Resolved]
  - Visual field defect [Recovered/Resolved]

NARRATIVE: CASE EVENT DATE: 20220215
